FAERS Safety Report 9686781 (Version 1)
Quarter: 2013Q4

REPORT INFORMATION
  Report Type: Spontaneous
  Country: US (occurrence: US)
  Receive Date: 20131113
  Receipt Date: 20131113
  Transmission Date: 20140711
  Serious: Yes (Other)
  Sender: FDA-Public Use
  Company Number: US-BAYER-2013-137993

PATIENT
  Age: 23 Year
  Sex: Female

DRUGS (1)
  1. MIRENA [Suspect]
     Indication: CONTRACEPTION
     Dosage: 20 ?G/D, CONT
     Route: 015
     Dates: start: 20131024

REACTIONS (5)
  - Post procedural haemorrhage [Not Recovered/Not Resolved]
  - Device difficult to use [None]
  - Procedural pain [None]
  - Dizziness [None]
  - Decreased appetite [None]
